FAERS Safety Report 15896824 (Version 2)
Quarter: 2021Q2

REPORT INFORMATION
  Report Type: Report from Study
  Country: US (occurrence: US)
  Receive Date: 20190131
  Receipt Date: 20210524
  Transmission Date: 20210716
  Serious: Yes (Life-Threatening, Hospitalization, Other)
  Sender: FDA-Public Use
  Company Number: US-GILEAD-2019-0386806

PATIENT
  Age: 70 Year
  Sex: Male

DRUGS (10)
  1. PLACEBO [Suspect]
     Active Substance: UNSPECIFIED INGREDIENT
     Indication: BONE MARROW TRANSPLANT
     Dosage: 100 MG
     Route: 048
     Dates: start: 20180906, end: 20181017
  2. ENTECAVIR. [Concomitant]
     Active Substance: ENTECAVIR
  3. VALTREX [Concomitant]
     Active Substance: VALACYCLOVIR HYDROCHLORIDE
  4. BLINDED IDELALISIB [Suspect]
     Active Substance: IDELALISIB
     Indication: BONE MARROW TRANSPLANT
     Dosage: 100 MG
     Route: 048
     Dates: start: 20180906, end: 20181017
  5. ALBUTEROL HFA [Concomitant]
     Active Substance: ALBUTEROL SULFATE
  6. GABAPENTIN. [Concomitant]
     Active Substance: GABAPENTIN
  7. NOXAFIL [Concomitant]
     Active Substance: POSACONAZOLE
  8. BACTRIM [Concomitant]
     Active Substance: SULFAMETHOXAZOLE\TRIMETHOPRIM
  9. PIOGLITAZONE. [Concomitant]
     Active Substance: PIOGLITAZONE
  10. CEFDINIR. [Concomitant]
     Active Substance: CEFDINIR

REACTIONS (10)
  - Cytomegalovirus viraemia [Recovered/Resolved]
  - Neutrophil count decreased [Recovered/Resolved]
  - Pneumonia [Unknown]
  - Dermatitis acneiform [Recovered/Resolved]
  - Pyrexia [Recovered/Resolved]
  - Cough [Unknown]
  - Cough [Recovered/Resolved]
  - Neutrophil count decreased [Recovered/Resolved]
  - Pneumonia [Recovered/Resolved]
  - Platelet count decreased [Recovered/Resolved]

NARRATIVE: CASE EVENT DATE: 20181004
